FAERS Safety Report 18377756 (Version 10)
Quarter: 2025Q2

REPORT INFORMATION
  Report Type: Report from Study
  Country: US (occurrence: US)
  Receive Date: 20201013
  Receipt Date: 20250502
  Transmission Date: 20250717
  Serious: Yes (Other)
  Sender: TAKEDA
  Company Number: US-SHIRE-US202032431

PATIENT
  Age: 78 Year
  Sex: Male
  Weight: 85.26 kg

DRUGS (28)
  1. HUMAN IMMUNOGLOBULIN G [Suspect]
     Active Substance: HUMAN IMMUNOGLOBULIN G
     Indication: Immunodeficiency common variable
     Dosage: 40 GRAM, Q6WEEKS
  2. HUMAN IMMUNOGLOBULIN G [Suspect]
     Active Substance: HUMAN IMMUNOGLOBULIN G
     Dosage: 40 GRAM, Q4WEEKS
  3. HUMAN IMMUNOGLOBULIN G [Suspect]
     Active Substance: HUMAN IMMUNOGLOBULIN G
     Dosage: 40 GRAM, Q6WEEKS
  4. ACETAMINOPHEN [Concomitant]
     Active Substance: ACETAMINOPHEN
  5. EPINEPHRINE [Concomitant]
     Active Substance: EPINEPHRINE
  6. TADALAFIL [Concomitant]
     Active Substance: TADALAFIL
  7. ALLEGRA ALLERGY [Concomitant]
     Active Substance: FEXOFENADINE HYDROCHLORIDE
  8. SINGULAIR [Concomitant]
     Active Substance: MONTELUKAST SODIUM
  9. SODIUM CHLORIDE [Concomitant]
     Active Substance: SODIUM CHLORIDE
  10. PROTONIX [Concomitant]
     Active Substance: PANTOPRAZOLE SODIUM
  11. BENAZEPRIL HYDROCHLORIDE [Concomitant]
     Active Substance: BENAZEPRIL HYDROCHLORIDE
  12. LIDOCAINE [Concomitant]
     Active Substance: LIDOCAINE
  13. PROAIR HFA [Concomitant]
     Active Substance: ALBUTEROL SULFATE
  14. SIMVASTATIN [Concomitant]
     Active Substance: SIMVASTATIN
  15. DIPHENHYDRAMINE HYDROCHLORIDE [Concomitant]
     Active Substance: DIPHENHYDRAMINE HYDROCHLORIDE
  16. FLECAINIDE ACETATE [Concomitant]
     Active Substance: FLECAINIDE ACETATE
  17. DIPHENHYDRAMINE [Concomitant]
     Active Substance: DIPHENHYDRAMINE
  18. TAMSULOSIN [Concomitant]
     Active Substance: TAMSULOSIN
  19. LOTREL [Concomitant]
     Active Substance: AMLODIPINE BESYLATE\BENAZEPRIL HYDROCHLORIDE
  20. AMOXICILLIN\CLAVULANIC ACID [Concomitant]
     Active Substance: AMOXICILLIN\CLAVULANIC ACID
     Indication: Pulmonary congestion
  21. DULOXETINE HYDROCHLORIDE [Concomitant]
     Active Substance: DULOXETINE HYDROCHLORIDE
  22. ALFUZOSIN HYDROCHLORIDE [Concomitant]
     Active Substance: ALFUZOSIN HYDROCHLORIDE
  23. VITAMINS [Concomitant]
     Active Substance: VITAMINS
  24. PROAIR HFA [Concomitant]
     Active Substance: ALBUTEROL SULFATE
  25. MONTELUKAST SODIUM [Concomitant]
     Active Substance: MONTELUKAST SODIUM
  26. XYZAL [Concomitant]
     Active Substance: LEVOCETIRIZINE DIHYDROCHLORIDE
  27. TESTOSTERONE [Concomitant]
     Active Substance: TESTOSTERONE
  28. LEXAPRO [Concomitant]
     Active Substance: ESCITALOPRAM OXALATE

REACTIONS (10)
  - Pulmonary congestion [Unknown]
  - Urinary tract disorder [Unknown]
  - Cholelithiasis [Unknown]
  - Insurance issue [Unknown]
  - COVID-19 [Unknown]
  - Product use issue [Unknown]
  - Hernia [Unknown]
  - Circumstance or information capable of leading to medication error [Unknown]
  - Sinusitis [Unknown]
  - Epistaxis [Unknown]

NARRATIVE: CASE EVENT DATE: 20230530
